FAERS Safety Report 4968508-8 (Version None)
Quarter: 2006Q2

REPORT INFORMATION
  Report Type: 
  Country: None (occurrence: None)
  Receive Date: 20060410
  Receipt Date: 20050715
  Transmission Date: 20061013
  Serious: Yes (Hospitalization, Other)
  Sender: FDA-Public Use
  Company Number: US-MERCK-0507USA02548

PATIENT
  Sex: Male
  Weight: 136 kg

DRUGS (5)
  1. VIOXX [Suspect]
     Indication: RECTAL HAEMORRHAGE
     Route: 048
     Dates: start: 20010129, end: 20040901
  2. VIOXX [Suspect]
     Route: 048
     Dates: start: 20000810, end: 20010121
  3. VIOXX [Suspect]
     Route: 048
     Dates: start: 20000810, end: 20010121
  4. ADVIL [Suspect]
     Indication: BACK PAIN
     Route: 065
  5. ADVIL [Suspect]
     Indication: NECK PAIN
     Route: 065

REACTIONS (8)
  - ACUTE MYOCARDIAL INFARCTION [None]
  - ANXIETY [None]
  - BARRETT'S OESOPHAGUS [None]
  - CARDIAC DISCOMFORT [None]
  - CARDIAC DISORDER [None]
  - DEPRESSION [None]
  - HERNIA REPAIR [None]
  - RECTAL HAEMORRHAGE [None]
